FAERS Safety Report 7377337-X (Version None)
Quarter: 2011Q1

REPORT INFORMATION
  Report Type: 
  Country: None (occurrence: None)
  Receive Date: 20110328
  Receipt Date: 20110318
  Transmission Date: 20110831
  Serious: Yes (Hospitalization, Other)
  Sender: FDA-Public Use
  Company Number: US-JNJFOC-20100804937

PATIENT
  Sex: Female

DRUGS (9)
  1. LEVAQUIN [Suspect]
     Indication: COUGH
     Route: 048
  2. LEVAQUIN [Suspect]
     Indication: ASTHMA
     Route: 048
  3. LEVAQUIN [Suspect]
     Indication: BRONCHITIS CHRONIC
     Route: 048
  4. LEVAQUIN [Suspect]
     Indication: SINUSITIS
     Route: 048
  5. PREDNISONE [Suspect]
     Indication: ASTHMA
     Route: 065
  6. LEVAQUIN [Suspect]
     Indication: BRONCHITIS
     Route: 048
  7. LEVAQUIN [Suspect]
     Route: 048
  8. LEVAQUIN [Suspect]
     Route: 048
  9. PREDNISONE [Suspect]
     Indication: CHRONIC OBSTRUCTIVE PULMONARY DISEASE
     Route: 065

REACTIONS (4)
  - JOINT INJURY [None]
  - EPICONDYLITIS [None]
  - ROTATOR CUFF SYNDROME [None]
  - TENDONITIS [None]
